FAERS Safety Report 24581443 (Version 11)
Quarter: 2025Q3

REPORT INFORMATION
  Report Type: Report from Study
  Country: CO (occurrence: CO)
  Receive Date: 20241105
  Receipt Date: 20250922
  Transmission Date: 20251021
  Serious: Yes (Other)
  Sender: TAKEDA
  Company Number: CO-TAKEDA-2024TUS105846

PATIENT
  Age: 53 Year
  Sex: Female
  Weight: 61 kg

DRUGS (4)
  1. VEDOLIZUMAB [Suspect]
     Active Substance: VEDOLIZUMAB
     Indication: Colitis ulcerative
  2. VEDOLIZUMAB [Suspect]
     Active Substance: VEDOLIZUMAB
     Dosage: 300 MILLIGRAM, Q4WEEKS
  3. MESALAMINE [Suspect]
     Active Substance: MESALAMINE
     Indication: Product used for unknown indication
  4. AZATHIOPRINE [Suspect]
     Active Substance: AZATHIOPRINE
     Indication: Product used for unknown indication

REACTIONS (14)
  - Colitis ulcerative [Unknown]
  - Thrombocytopenia [Unknown]
  - Hypersensitivity [Recovered/Resolved]
  - Anxiety [Unknown]
  - Crying [Unknown]
  - Treatment noncompliance [Unknown]
  - Product availability issue [Unknown]
  - Stress [Unknown]
  - Menstruation irregular [Unknown]
  - Product dose omission issue [Unknown]
  - Decreased appetite [Unknown]
  - Flatulence [Unknown]
  - Productive cough [Unknown]
  - Gallbladder polyp [Unknown]

NARRATIVE: CASE EVENT DATE: 20241029
